FAERS Safety Report 22652434 (Version 1)
Quarter: 2023Q2

REPORT INFORMATION
  Report Type: Report from Study
  Country: CA (occurrence: CA)
  Receive Date: 20230629
  Receipt Date: 20230629
  Transmission Date: 20230722
  Serious: Yes (Hospitalization)
  Sender: FDA-Public Use
  Company Number: CA-BIOGEN-2023BI01212854

PATIENT
  Sex: Female

DRUGS (1)
  1. SPINRAZA [Suspect]
     Active Substance: NUSINERSEN
     Indication: Spinal muscular atrophy
     Dosage: 0DAYS, 14DAYS,14DAYS, 30 DAYS, EVERY 4 MONTHS
     Route: 050
     Dates: start: 20180802

REACTIONS (1)
  - Scoliosis [Unknown]
